FAERS Safety Report 19180129 (Version 3)
Quarter: 2021Q2

REPORT INFORMATION
  Report Type: Report from Study
  Country: AT (occurrence: AT)
  Receive Date: 20210426
  Receipt Date: 20210513
  Transmission Date: 20210717
  Serious: Yes (Hospitalization)
  Sender: FDA-Public Use
  Company Number: AT-VER-202100004

PATIENT
  Age: 59 Year
  Sex: Male

DRUGS (4)
  1. PACLITAXEL. [Concomitant]
     Active Substance: PACLITAXEL
     Indication: SALIVARY GLAND CANCER
     Route: 042
     Dates: start: 20181024, end: 20190430
  2. BICALUTAMIDE. [Suspect]
     Active Substance: BICALUTAMIDE
     Indication: SALIVARY GLAND CANCER
     Route: 048
     Dates: start: 20190219, end: 20190520
  3. TRIPTORELIN [Suspect]
     Active Substance: TRIPTORELIN
     Indication: SALIVARY GLAND CANCER
     Dosage: 3.75 MG ?28 DAY
     Route: 030
     Dates: start: 20190226, end: 20190520
  4. CARBOPLATIN. [Concomitant]
     Active Substance: CARBOPLATIN
     Indication: SALIVARY GLAND CANCER
     Route: 042
     Dates: start: 20181024, end: 20190130

REACTIONS (1)
  - Pneumonia [Recovered/Resolved]

NARRATIVE: CASE EVENT DATE: 20190609
